FAERS Safety Report 25366590 (Version 2)
Quarter: 2025Q2

REPORT INFORMATION
  Report Type: Spontaneous
  Country: US (occurrence: US)
  Receive Date: 20250528
  Receipt Date: 20250529
  Transmission Date: 20250717
  Serious: No
  Sender: SANDOZ
  Company Number: US-SANDOZ-SDZ2025US034475

PATIENT
  Sex: Female

DRUGS (1)
  1. VIVELLE-DOT [Suspect]
     Active Substance: ESTRADIOL
     Indication: Product used for unknown indication
     Dosage: 0.0375MG /1D 8TTS, QW
     Route: 062

REACTIONS (3)
  - Adverse drug reaction [Unknown]
  - Circumstance or information capable of leading to device use error [Unknown]
  - Product adhesion issue [Unknown]
